FAERS Safety Report 7662584-X (Version None)
Quarter: 2011Q3

REPORT INFORMATION
  Report Type: 
  Country: None (occurrence: None)
  Receive Date: 20110805
  Receipt Date: 20100826
  Transmission Date: 20111222
  Serious: No
  Sender: FDA-Public Use
  Company Number: US-ABBOTT-10P-163-0666307-00

PATIENT
  Sex: Female
  Weight: 59.02 kg

DRUGS (3)
  1. UNKNOWN MEDICATION [Concomitant]
     Indication: EPILEPSY
  2. NIASPAN [Suspect]
     Indication: BLOOD TRIGLYCERIDES INCREASED
     Dates: start: 20100201, end: 20100201
  3. UNKNOWN MEDICATION [Concomitant]
     Indication: DIABETES MELLITUS

REACTIONS (2)
  - RASH PAPULAR [None]
  - RASH PRURITIC [None]
